FAERS Safety Report 9649655 (Version 3)
Quarter: 2014Q2

REPORT INFORMATION
  Report Type: Report from Study
  Country: JP (occurrence: JP)
  Receive Date: 20131028
  Receipt Date: 20140508
  Transmission Date: 20141212
  Serious: Yes (Other)
  Sender: FDA-Public Use
  Company Number: JP-ABBVIE-13P-087-1136969-00

PATIENT
  Age: 67 Year
  Sex: Male
  Weight: 57 kg

DRUGS (17)
  1. HUMIRA [Suspect]
     Indication: RHEUMATOID ARTHRITIS
     Route: 058
     Dates: start: 20120620
  2. SALAZOSULFAPYRIDINE [Concomitant]
     Indication: RHEUMATOID ARTHRITIS
     Route: 048
  3. METHOTREXATE [Concomitant]
     Indication: RHEUMATOID ARTHRITIS
     Route: 048
  4. PREDNISOLONE [Concomitant]
     Indication: RHEUMATOID ARTHRITIS
     Route: 048
     Dates: end: 20120920
  5. PREDNISOLONE [Concomitant]
     Route: 048
     Dates: start: 20120921, end: 20121015
  6. PREDNISOLONE [Concomitant]
     Dates: start: 20121016, end: 20121119
  7. PREDNISOLONE [Concomitant]
     Dates: start: 20121120, end: 20121213
  8. PREDNISOLONE [Concomitant]
     Dates: start: 20121214, end: 20130121
  9. PITAVASTATIN CALCIUM [Concomitant]
     Indication: PRODUCT USED FOR UNKNOWN INDICATION
     Route: 048
  10. TEPRENONE [Concomitant]
     Indication: PRODUCT USED FOR UNKNOWN INDICATION
     Route: 048
  11. ALFACALCIDOL [Concomitant]
     Indication: PRODUCT USED FOR UNKNOWN INDICATION
     Route: 048
  12. SODIUM RISEDRONATE HYDRATE [Concomitant]
     Indication: PRODUCT USED FOR UNKNOWN INDICATION
     Route: 048
  13. LOXOPROFEN SODIUM HYDRATE [Concomitant]
     Indication: PRODUCT USED FOR UNKNOWN INDICATION
     Route: 062
  14. FEXOFENADINE HYDROCHLORIDE [Concomitant]
     Indication: PROPHYLAXIS
     Route: 048
  15. FEXOFENADINE HYDROCHLORIDE [Concomitant]
     Indication: HYPERSENSITIVITY
  16. FOLIC ACID [Concomitant]
     Indication: PROPHYLAXIS
     Route: 048
  17. FOLIC ACID [Concomitant]
     Indication: ADVERSE DRUG REACTION

REACTIONS (3)
  - Polypoidal choroidal vasculopathy [Recovering/Resolving]
  - Drug hypersensitivity [Unknown]
  - Drug hypersensitivity [Unknown]
